FAERS Safety Report 18990925 (Version 1)
Quarter: 2021Q1

REPORT INFORMATION
  Report Type: Spontaneous
  Country: JP (occurrence: JP)
  Receive Date: 20210310
  Receipt Date: 20210310
  Transmission Date: 20210420
  Serious: Yes (Death)
  Sender: FDA-Public Use
  Company Number: JP-ROCHE-2761889

PATIENT
  Age: 87 Year
  Sex: Female

DRUGS (3)
  1. ACTEMRA [Suspect]
     Active Substance: TOCILIZUMAB
     Indication: COVID-19 PNEUMONIA
     Dosage: DOSAGE IS UNCERTAIN.
     Route: 041
     Dates: start: 20210212, end: 20210212
  2. AVIGAN [Concomitant]
     Active Substance: FAVIPIRAVIR
     Route: 065
     Dates: start: 20210129
  3. ACTEMRA [Suspect]
     Active Substance: TOCILIZUMAB
     Indication: CYTOKINE STORM

REACTIONS (3)
  - Intentional product use issue [Unknown]
  - Cardiac failure [Fatal]
  - Off label use [Unknown]

NARRATIVE: CASE EVENT DATE: 20210212
